FAERS Safety Report 5907519-2 (Version None)
Quarter: 2008Q4

REPORT INFORMATION
  Report Type: 
  Country: None (occurrence: None)
  Receive Date: 20081003
  Receipt Date: 20080929
  Transmission Date: 20090506
  Serious: Yes (Life-Threatening, Hospitalization, Other)
  Sender: FDA-Public Use
  Company Number: FR-BRISTOL-MYERS SQUIBB COMPANY-14351993

PATIENT
  Age: 65 Year
  Sex: Female

DRUGS (8)
  1. COUMADIN [Suspect]
     Dates: start: 20070626, end: 20070628
  2. CEPROTIN [Suspect]
     Indication: PROTEIN C DEFICIENCY
     Route: 042
     Dates: start: 20070626, end: 20070628
  3. FRAXODI [Concomitant]
     Route: 058
     Dates: start: 20070623
  4. PRINIVIL [Concomitant]
     Dosage: PRINIVIL 20MG
     Dates: end: 20070628
  5. AMLOD [Concomitant]
     Dosage: AMLOR 5MG
     Dates: end: 20070628
  6. DETENSIEL [Concomitant]
     Dosage: DETENSIEL 10MG
     Dates: end: 20070628
  7. SKENAN [Concomitant]
     Dosage: SKENAN LP
     Dates: start: 20070624
  8. MORPHINE [Concomitant]
     Dates: start: 20070624, end: 20070626

REACTIONS (4)
  - OVERDOSE [None]
  - RENAL FAILURE ACUTE [None]
  - RENAL TUBULAR NECROSIS [None]
  - SKIN NECROSIS [None]
